FAERS Safety Report 11574206 (Version 3)
Quarter: 2015Q4

REPORT INFORMATION
  Report Type: Report from Study
  Country: AR (occurrence: AR)
  Receive Date: 20150930
  Receipt Date: 20151008
  Transmission Date: 20160304
  Serious: Yes (Hospitalization)
  Sender: FDA-Public Use
  Company Number: AR-ROCHE-1638952

PATIENT
  Age: 70 Year
  Sex: Female

DRUGS (2)
  1. HERCEPTIN [Suspect]
     Active Substance: TRASTUZUMAB
     Indication: BREAST CANCER
     Dosage: DOSE UNKNOWN
     Route: 042
     Dates: start: 20150108
  2. HERCEPTIN [Suspect]
     Active Substance: TRASTUZUMAB
     Dosage: DOSE UNKNOWN
     Route: 042
     Dates: start: 20151001

REACTIONS (2)
  - Anaemia [Unknown]
  - Immunodeficiency [Unknown]

NARRATIVE: CASE EVENT DATE: 20150922
